FAERS Safety Report 15777047 (Version 1)
Quarter: 2018Q4

REPORT INFORMATION
  Report Type: Report from Study
  Country: DE (occurrence: DE)
  Receive Date: 20181231
  Receipt Date: 20181231
  Transmission Date: 20190205
  Serious: Yes (Hospitalization, Other)
  Sender: FDA-Public Use
  Company Number: DE-PFIZER INC-2018534954

PATIENT
  Age: 2 Year
  Sex: Female
  Weight: 13 kg

DRUGS (3)
  1. METHOTREXATE SODIUM. [Suspect]
     Active Substance: METHOTREXATE SODIUM
     Indication: ACUTE LYMPHOCYTIC LEUKAEMIA
     Dosage: 5 MG, UNK
     Route: 042
     Dates: start: 20020812, end: 20020812
  2. METHOTREXATE SODIUM. [Suspect]
     Active Substance: METHOTREXATE SODIUM
     Dosage: 5 MG, UNK
     Route: 042
     Dates: start: 20020725
  3. METHOTREXATE SODIUM. [Suspect]
     Active Substance: METHOTREXATE SODIUM
     Indication: ACUTE LYMPHOCYTIC LEUKAEMIA
     Dosage: 20 MG, WEEKLY
     Route: 048
     Dates: start: 200303, end: 20030419

REACTIONS (8)
  - Nervous system disorder [Recovering/Resolving]
  - Abnormal behaviour [Recovering/Resolving]
  - Nuclear magnetic resonance imaging brain abnormal [Unknown]
  - Gait disturbance [Recovering/Resolving]
  - Mental impairment [Recovering/Resolving]
  - Motor dysfunction [Recovering/Resolving]
  - Encephalopathy [Recovering/Resolving]
  - Gastroenteritis [Recovered/Resolved]

NARRATIVE: CASE EVENT DATE: 200304
